FAERS Safety Report 4928722-4 (Version None)
Quarter: 2006Q1

REPORT INFORMATION
  Report Type: 
  Country: None (occurrence: None)
  Receive Date: 20060227
  Receipt Date: 20060227
  Transmission Date: 20060701
  Serious: Yes (Disabling, Other)
  Sender: FDA-Public Use
  Company Number: None

PATIENT
  Age: 26 Year
  Sex: Male
  Weight: 77.1115 kg

DRUGS (1)
  1. FOCALIN [Suspect]
     Indication: ATTENTION DEFICIT/HYPERACTIVITY DISORDER
     Dosage: 20 MG XR 1 DAILY PO, 10 MG SHORT-RELEASE 3 DAILY PO
     Route: 048
     Dates: start: 20051120, end: 20060115

REACTIONS (3)
  - CHEST PAIN [None]
  - HYPERTENSION [None]
  - NECK PAIN [None]
